FAERS Safety Report 8904271 (Version 1)
Quarter: 2012Q4

REPORT INFORMATION
  Report Type: 
  Country: US (occurrence: US)
  Receive Date: 20121112
  Receipt Date: 20121112
  Transmission Date: 20130627
  Serious: Yes (Death)
  Sender: FDA-Public Use
  Company Number: US-GLAXOSMITHKLINE-A0999971A

PATIENT
  Age: 55 Year
  Sex: Female

DRUGS (5)
  1. ARIXTRA [Suspect]
     Indication: DEEP VEIN THROMBOSIS
     Dosage: 7.5MG Per day
     Dates: start: 201209
  2. SPIRIVA [Concomitant]
  3. PRO-AIR [Concomitant]
  4. PERCOCET [Concomitant]
  5. OXYCONTIN [Concomitant]

REACTIONS (1)
  - Non-small cell lung cancer [Fatal]
